FAERS Safety Report 4582941-8 (Version None)
Quarter: 2005Q1

REPORT INFORMATION
  Report Type: 
  Country: None (occurrence: None)
  Receive Date: 20050127
  Receipt Date: 20041025
  Transmission Date: 20050727
  Serious: No
  Sender: FDA-Public Use
  Company Number: USA040978437

PATIENT
  Age: 33 Year
  Sex: Male
  Weight: 102 kg

DRUGS (2)
  1. STRATTERA [Suspect]
     Indication: ATTENTION DEFICIT/HYPERACTIVITY DISORDER
     Dosage: 80 MG/1 DAY
     Dates: start: 20040628
  2. CONCERTA [Concomitant]

REACTIONS (2)
  - ABDOMINAL PAIN UPPER [None]
  - EJACULATION DISORDER [None]
